FAERS Safety Report 25936920 (Version 2)
Quarter: 2025Q4

REPORT INFORMATION
  Report Type: Spontaneous
  Country: US (occurrence: US)
  Receive Date: 20251017
  Receipt Date: 20251216
  Transmission Date: 20260117
  Serious: No
  Sender: VERTEX
  Company Number: US-VERTEX PHARMACEUTICALS-2025-017299

PATIENT

DRUGS (1)
  1. TRIKAFTA [Suspect]
     Active Substance: ELEXACAFTOR\IVACAFTOR\TEZACAFTOR
     Indication: Cystic fibrosis
     Dosage: UNKNOWN DOSAGE REGIMEN
     Route: 061

REACTIONS (6)
  - Somnolence [Not Recovered/Not Resolved]
  - Brain fog [Unknown]
  - Attention deficit hyperactivity disorder [Unknown]
  - Hyperhidrosis [Unknown]
  - Decreased appetite [Unknown]
  - Depression [Unknown]
